FAERS Safety Report 7758729-3 (Version None)
Quarter: 2011Q3

REPORT INFORMATION
  Report Type: 
  Country: None (occurrence: None)
  Receive Date: 20110919
  Receipt Date: 20110906
  Transmission Date: 20111222
  Serious: Yes (Hospitalization)
  Sender: FDA-Public Use
  Company Number: DE-US-EMD SERONO, INC.-7081544

PATIENT
  Sex: Male

DRUGS (1)
  1. REBIF [Suspect]
     Indication: MULTIPLE SCLEROSIS
     Route: 058
     Dates: start: 20110801

REACTIONS (4)
  - INTENTION TREMOR [None]
  - ATAXIA [None]
  - MUSCULAR WEAKNESS [None]
  - INCONTINENCE [None]
